FAERS Safety Report 20053842 (Version 2)
Quarter: 2022Q2

REPORT INFORMATION
  Report Type: Report from Study
  Country: CN (occurrence: None)
  Receive Date: 20211110
  Receipt Date: 20220401
  Transmission Date: 20220721
  Serious: Yes (Hospitalization)
  Sender: FDA-Public Use
  Company Number: 2021A703972

PATIENT
  Age: 74 Year
  Sex: Male

DRUGS (20)
  1. DURVALUMAB [Suspect]
     Active Substance: DURVALUMAB
     Indication: Oesophageal squamous cell carcinoma
     Dosage: 1500.0 MG
     Route: 042
     Dates: start: 20210614, end: 20210614
  2. DURVALUMAB [Suspect]
     Active Substance: DURVALUMAB
     Indication: Oesophageal squamous cell carcinoma
     Dosage: 1500.0 MG
     Route: 042
     Dates: start: 20211007, end: 20211007
  3. CISPLATIN [Suspect]
     Active Substance: CISPLATIN
     Indication: Oesophageal squamous cell carcinoma
     Dosage: 30.0 MG/M2
     Route: 065
     Dates: start: 20210615, end: 20210615
  4. CISPLATIN [Suspect]
     Active Substance: CISPLATIN
     Indication: Oesophageal squamous cell carcinoma
     Dosage: 30.0 MG/M2
     Route: 065
     Dates: start: 20210701, end: 20210701
  5. CAPECITABINE [Suspect]
     Active Substance: CAPECITABINE
     Indication: Oesophageal squamous cell carcinoma
     Route: 065
     Dates: start: 20210615, end: 20210619
  6. CAPECITABINE [Suspect]
     Active Substance: CAPECITABINE
     Indication: Oesophageal squamous cell carcinoma
     Route: 065
     Dates: start: 20210701, end: 20210705
  7. PLACENTA POLYPEJPTIDE INJECTION [Concomitant]
     Indication: Immunology test
     Dates: start: 20210601, end: 20210613
  8. GLYCERINE ENEMA [Concomitant]
     Indication: Constipation
     Dates: start: 20210602
  9. SODIUM CHLORIDE/AZASETRON HYDROCHLORIDE [Concomitant]
     Indication: Prophylaxis of nausea and vomiting
     Dates: start: 20210615, end: 20210621
  10. METOCLOPRAMIDE DIHYDROCHLORIDE INJECTION [Concomitant]
     Indication: Prophylaxis of nausea and vomiting
     Dates: start: 20210615, end: 20210615
  11. AMINO ACIDS, SOURCE UNSPECIFIED [Concomitant]
     Active Substance: AMINO ACIDS, SOURCE UNSPECIFIED
     Indication: Imprisonment
     Dates: start: 20210615, end: 20210615
  12. LIPOSYN (R) INTRAVENOUS FAT EMULSION [Concomitant]
     Active Substance: LIPOSYN (R) INTRAVENOUS FAT EMULSION
     Indication: Imprisonment
     Dates: start: 20210615, end: 20210621
  13. RECOMBINANT HUMAN INTERLEUKIN-11 FOR INJECTION [Concomitant]
     Indication: Platelet count increased
     Dates: start: 20210618, end: 20210620
  14. RECOMBINANT HUMAN INTERLEUKIN-11 FOR INJECTION [Concomitant]
     Indication: Platelet count increased
     Dates: start: 20210622, end: 20210628
  15. KANG FU XIN YE [Concomitant]
     Indication: Gastritis
     Dates: start: 20210618, end: 20210618
  16. PROMETHAZINE [Concomitant]
     Active Substance: PROMETHAZINE HYDROCHLORIDE
     Indication: Sedation
     Dates: start: 20210619, end: 20210619
  17. IBUPROFEN SUSPENSION [Concomitant]
     Indication: Pyrexia
     Dates: start: 20210619, end: 20210619
  18. LEVOFLOXACIN HYDROCHLORIDE [Concomitant]
     Active Substance: LEVOFLOXACIN HYDROCHLORIDE
     Indication: Inflammation
     Dates: start: 20210619, end: 20210628
  19. FAT EMULSION,AMINO ACIDS (17) AND GLUCOSE (11) INJECTION [Concomitant]
     Indication: Job change
     Dates: start: 20210622, end: 20210629
  20. NESTLE JIA SHAN JIA LI CHANG [Concomitant]
     Indication: Nutritional supplementation
     Dates: start: 20210621

REACTIONS (1)
  - White blood cell count decreased [Recovered/Resolved]

NARRATIVE: CASE EVENT DATE: 20210624
